FAERS Safety Report 5033578-8 (Version None)
Quarter: 2006Q2

REPORT INFORMATION
  Report Type: 
  Country: None (occurrence: None)
  Receive Date: 20060623
  Receipt Date: 20060605
  Transmission Date: 20061013
  Serious: Yes (Hospitalization)
  Sender: FDA-Public Use
  Company Number: US-ROCHE-450649

PATIENT
  Age: 73 Year
  Sex: Male
  Weight: 61.7 kg

DRUGS (8)
  1. CAPECITABINE [Suspect]
     Indication: COLORECTAL CANCER
     Route: 048
     Dates: start: 20060518
  2. AVASTIN [Suspect]
     Indication: COLORECTAL CANCER
     Route: 042
     Dates: start: 20060518
  3. OXALIPLATIN [Suspect]
     Indication: COLORECTAL CANCER
     Route: 042
     Dates: start: 20060518
  4. NEXIUM [Concomitant]
     Dates: start: 20040615
  5. ZOLOFT [Concomitant]
     Dates: start: 20050615
  6. IRON SULFATETHIAMIN COMPOUND TAB [Concomitant]
     Dates: start: 20060512
  7. MEGACE [Concomitant]
     Dates: start: 20060512
  8. UNSPECIFIED DRUG [Concomitant]
     Dosage: DRUG REPORTED AS MIRACLE MOUTH WASH. DOSING REPORTED AS ^PRN^
     Dates: start: 20060525

REACTIONS (2)
  - DRUG TOXICITY [None]
  - MUCOSAL INFLAMMATION [None]
